FAERS Safety Report 6196508-1 (Version None)
Quarter: 2009Q2

REPORT INFORMATION
  Report Type: 
  Country: None (occurrence: None)
  Receive Date: 20090520
  Receipt Date: 20090515
  Transmission Date: 20091009
  Serious: Yes (Death, Hospitalization)
  Sender: FDA-Public Use
  Company Number: BR-BAYER-200819095LA

PATIENT
  Age: 51 Year
  Sex: Female

DRUGS (1)
  1. BETAFERON [Suspect]
     Indication: MULTIPLE SCLEROSIS
     Dosage: BETAJECT
     Route: 058
     Dates: start: 20060101, end: 20081006

REACTIONS (8)
  - AMNESIA [None]
  - APHASIA [None]
  - DIARRHOEA [None]
  - MULTIPLE SCLEROSIS [None]
  - PNEUMONIA [None]
  - PYREXIA [None]
  - STARING [None]
  - YELLOW SKIN [None]
